FAERS Safety Report 20741239 (Version 2)
Quarter: 2022Q2

REPORT INFORMATION
  Report Type: Spontaneous
  Country: DE (occurrence: DE)
  Receive Date: 20220422
  Receipt Date: 20220523
  Transmission Date: 20220721
  Serious: Yes (Other)
  Sender: FDA-Public Use
  Company Number: DE-002147023-NVSC2022DE065131

PATIENT
  Age: 51 Year
  Sex: Female

DRUGS (1)
  1. TAMOXIFEN [Suspect]
     Active Substance: TAMOXIFEN
     Indication: Hormone receptor positive HER2 negative breast cancer
     Dosage: UNK
     Route: 065
     Dates: start: 2011, end: 2013

REACTIONS (8)
  - Metastases to central nervous system [Unknown]
  - Metastases to bone [Unknown]
  - Metastases to lung [Unknown]
  - Malignant pleural effusion [Unknown]
  - Metastases to abdominal wall [Unknown]
  - Metastases to liver [Unknown]
  - Malignant melanoma [Unknown]
  - Breast cancer metastatic [Unknown]

NARRATIVE: CASE EVENT DATE: 20120101
